FAERS Safety Report 24425002 (Version 8)
Quarter: 2025Q2

REPORT INFORMATION
  Report Type: Report from Study
  Country: US (occurrence: US)
  Receive Date: 20241010
  Receipt Date: 20250617
  Transmission Date: 20250716
  Serious: Yes (Hospitalization, Other)
  Sender: SUNOVION
  Company Number: US-SUMITOMO PHARMA SWITZERLAND GMBH-2024SPA003421

PATIENT

DRUGS (2)
  1. ORGOVYX [Suspect]
     Active Substance: RELUGOLIX
     Indication: Prostate cancer
     Dosage: 360 MG, SINGLE
     Route: 048
  2. ORGOVYX [Suspect]
     Active Substance: RELUGOLIX
     Dosage: 120 MG, QD
     Route: 048
     Dates: start: 20240928

REACTIONS (17)
  - Benign lung neoplasm [Unknown]
  - Hyperthyroidism [Unknown]
  - Dizziness [Unknown]
  - Stress [Unknown]
  - Feeling of body temperature change [Unknown]
  - Incontinence [Recovering/Resolving]
  - Blood calcium increased [Unknown]
  - Alanine aminotransferase decreased [Unknown]
  - Night sweats [Unknown]
  - Prostatic specific antigen increased [Unknown]
  - Myalgia [Unknown]
  - Insomnia [Unknown]
  - Pain in extremity [Unknown]
  - Hot flush [Recovering/Resolving]
  - Fatigue [Unknown]
  - Hyperhidrosis [Unknown]
  - Product dose omission in error [Unknown]
